FAERS Safety Report 25391340 (Version 1)
Quarter: 2025Q2

REPORT INFORMATION
  Report Type: Report from Study
  Country: MX (occurrence: MX)
  Receive Date: 20250603
  Receipt Date: 20250603
  Transmission Date: 20250717
  Serious: Yes (Disabling)
  Sender: ABBVIE
  Company Number: MX-ABBOTT-2025A-1399662

PATIENT
  Sex: Female

DRUGS (1)
  1. EPIVAL [Suspect]
     Active Substance: DIVALPROEX SODIUM
     Indication: Product used for unknown indication
     Route: 048

REACTIONS (1)
  - Disability [Unknown]
